FAERS Safety Report 25320246 (Version 1)
Quarter: 2025Q2

REPORT INFORMATION
  Report Type: Other
  Country: US (occurrence: US)
  Receive Date: 20250515
  Receipt Date: 20250515
  Transmission Date: 20250716
  Serious: No
  Sender: TRAVERE THERAPEUTICS
  Company Number: US-TRAVERE-2025TVT00645

PATIENT
  Age: 38 Year
  Sex: Female

DRUGS (1)
  1. FILSPARI [Suspect]
     Active Substance: SPARSENTAN
     Indication: IgA nephropathy
     Route: 048
     Dates: start: 20250410, end: 20250424

REACTIONS (5)
  - Swelling face [Recovered/Resolved]
  - Peripheral swelling [Recovering/Resolving]
  - Headache [Recovered/Resolved]
  - Oligomenorrhoea [Recovered/Resolved]
  - Intermenstrual bleeding [None]
